FAERS Safety Report 11050778 (Version 1)
Quarter: 2015Q2

REPORT INFORMATION
  Report Type: Spontaneous
  Country: US (occurrence: None)
  Receive Date: 20150417
  Receipt Date: 20150417
  Transmission Date: 20150821
  Serious: Yes (Disabling, Other)
  Sender: FDA-Public Use
  Company Number: 2015-11068

PATIENT
  Age: 80 Year
  Sex: Male

DRUGS (1)
  1. EYLEA [Suspect]
     Active Substance: AFLIBERCEPT
     Indication: PRODUCT USED FOR UNKNOWN INDICATION
     Dosage: 5TH INJECTION, OS
     Route: 031
     Dates: start: 20150327, end: 20150327

REACTIONS (2)
  - Blindness unilateral [None]
  - Endophthalmitis [None]

NARRATIVE: CASE EVENT DATE: 20150402
